FAERS Safety Report 9221122 (Version 2)
Quarter: 2014Q4

REPORT INFORMATION
  Report Type: Spontaneous
  Country: AT (occurrence: AT)
  Receive Date: 20130409
  Receipt Date: 20141024
  Transmission Date: 20150529
  Serious: Yes (Death, Hospitalization, Other)
  Sender: FDA-Public Use
  Company Number: AT-AMGEN-AUTSP2013024049

PATIENT
  Age: 68 Year
  Sex: Female
  Weight: 73 kg

DRUGS (4)
  1. 5 FLUOROURACIL                     /00098801/ [Suspect]
     Active Substance: FLUOROURACIL
     Indication: SIGNET-RING CELL CARCINOMA
     Dosage: 750 MG/M2, Q3WK
     Route: 042
     Dates: start: 20130304, end: 20130308
  2. TAXOTERE [Suspect]
     Active Substance: DOCETAXEL
     Indication: SIGNET-RING CELL CARCINOMA
     Dosage: 75 MG/M2, Q3WK
     Route: 042
     Dates: start: 20130304, end: 20130304
  3. NEULASTA [Suspect]
     Active Substance: PEGFILGRASTIM
     Indication: PRODUCT USED FOR UNKNOWN INDICATION
     Dosage: 6 MG, 1 X
     Route: 058
     Dates: start: 20130310, end: 20130310
  4. CARBOPLATIN. [Suspect]
     Active Substance: CARBOPLATIN
     Indication: SIGNET-RING CELL CARCINOMA
     Dosage: AUC 5,  Q3WK
     Route: 042
     Dates: start: 20130304, end: 20130304

REACTIONS (21)
  - C-reactive protein increased [Fatal]
  - Haemodynamic instability [Unknown]
  - Enterococcal infection [Unknown]
  - Asthenia [Unknown]
  - Hyperlipidaemia [Fatal]
  - Pancytopenia [Fatal]
  - Dyspnoea [Unknown]
  - Diarrhoea [Unknown]
  - Hepatorenal failure [Fatal]
  - Chronic kidney disease [Fatal]
  - Obesity [Fatal]
  - Pyrexia [Unknown]
  - Peripheral arterial occlusive disease [Fatal]
  - Type 2 diabetes mellitus [Fatal]
  - Lobar pneumonia [Fatal]
  - Cardiovascular insufficiency [Fatal]
  - Muscle fatigue [Unknown]
  - Hypertension [Fatal]
  - Sepsis [Fatal]
  - Neutropenia [Recovered/Resolved]
  - Acute respiratory distress syndrome [Unknown]

NARRATIVE: CASE EVENT DATE: 20130315
